FAERS Safety Report 22119147 (Version 1)
Quarter: 2023Q1

REPORT INFORMATION
  Report Type: Report from Study
  Country: AR (occurrence: AR)
  Receive Date: 20230321
  Receipt Date: 20230321
  Transmission Date: 20230418
  Serious: Yes (Other)
  Sender: FDA-Public Use
  Company Number: AR-JNJFOC-20230334710

PATIENT
  Age: 95 Year
  Sex: Male
  Weight: 66 kg

DRUGS (1)
  1. APALUTAMIDE [Suspect]
     Active Substance: APALUTAMIDE
     Indication: Hormone-dependent prostate cancer
     Route: 048
     Dates: start: 20210212

REACTIONS (1)
  - Drowning [Recovered/Resolved]

NARRATIVE: CASE EVENT DATE: 20220101
